FAERS Safety Report 9313688 (Version 1)
Quarter: 2013Q2

REPORT INFORMATION
  Report Type: Spontaneous
  Country: US (occurrence: US)
  Receive Date: 20130529
  Receipt Date: 20130529
  Transmission Date: 20140414
  Serious: Yes (Other)
  Sender: FDA-Public Use
  Company Number: US-AMGEN-USASP2013037232

PATIENT
  Age: 63 Year
  Sex: Female

DRUGS (7)
  1. ENBREL [Suspect]
     Indication: PRODUCT USED FOR UNKNOWN INDICATION
     Dosage: 50 MG, QWK
     Route: 058
  2. CITALOPRAM [Concomitant]
     Dosage: 10 MG, UNK
  3. LEVOTHYROXIN [Concomitant]
     Dosage: 100 MUG, UNK
  4. PRAVASTATIN [Concomitant]
     Dosage: 10 MG, UNK
  5. LOSARTAN POTASSIUM [Concomitant]
     Dosage: 25 MG, UNK
  6. HYDROCODONE/HOMATROP [Concomitant]
     Dosage: UNK
  7. PREDNISONE [Concomitant]
     Dosage: 1 MG, UNK

REACTIONS (4)
  - Fungal oesophagitis [Unknown]
  - Laboratory test abnormal [Unknown]
  - Injection site bruising [Unknown]
  - Injection site pain [Unknown]
